FAERS Safety Report 5714504-2 (Version None)
Quarter: 2008Q2

REPORT INFORMATION
  Report Type: 
  Country: None (occurrence: None)
  Receive Date: 20080423
  Receipt Date: 20080414
  Transmission Date: 20081010
  Serious: Yes (Hospitalization)
  Sender: FDA-Public Use
  Company Number: PHRM2008FR01306

PATIENT
  Age: 56 Year
  Sex: Female

DRUGS (7)
  1. NAVELBINE [Concomitant]
     Route: 042
     Dates: start: 20070601
  2. ARIMIDEX [Concomitant]
     Route: 048
     Dates: end: 20060501
  3. AROMASIN [Concomitant]
     Route: 048
     Dates: start: 20060501, end: 20070601
  4. LYTOS [Suspect]
     Dosage: 2 DF, QD
     Route: 048
     Dates: start: 20070127, end: 20070601
  5. AVASTIN [Concomitant]
     Route: 042
     Dates: start: 20070601
  6. ZOMETA [Suspect]
     Dosage: 4 MG, QMO
     Route: 042
     Dates: start: 20050609
  7. ZOMETA [Suspect]
     Dosage: 4 MG EVERY 6 WEEKS
     Route: 042
     Dates: start: 20050901, end: 20070104

REACTIONS (4)
  - DEBRIDEMENT [None]
  - HYPOAESTHESIA ORAL [None]
  - OSTEONECROSIS [None]
  - POOR PERSONAL HYGIENE [None]
